FAERS Safety Report 6019955-7 (Version None)
Quarter: 2008Q4

REPORT INFORMATION
  Report Type: 
  Country: None (occurrence: None)
  Receive Date: 20081223
  Receipt Date: 20081215
  Transmission Date: 20090506
  Serious: Yes (Other)
  Sender: FDA-Public Use
  Company Number: 08-001972

PATIENT
  Sex: Female

DRUGS (1)
  1. ESTRACE [Suspect]
     Dosage: UNK, VAGINAL
     Route: 067
     Dates: start: 20081101, end: 20081125

REACTIONS (7)
  - DRUG HYPERSENSITIVITY [None]
  - DRUG INEFFECTIVE [None]
  - DYSPNOEA [None]
  - PRURITUS [None]
  - RASH PRURITIC [None]
  - THROAT TIGHTNESS [None]
  - URTICARIA [None]
